FAERS Safety Report 25860237 (Version 1)
Quarter: 2025Q3

REPORT INFORMATION
  Report Type: Spontaneous
  Country: US (occurrence: None)
  Receive Date: 20250928
  Receipt Date: 20250928
  Transmission Date: 20251020
  Serious: Yes (unspecified)
  Sender: FDA-CTU
  Company Number: None

PATIENT
  Age: 63 Year
  Sex: Female
  Weight: 58.95 kg

DRUGS (11)
  1. CELECOXIB [Suspect]
     Active Substance: CELECOXIB
     Indication: Pain
     Dosage: 30 CAPSULE(S) DAILY ORAL
     Route: 048
  2. CELECOXIB [Suspect]
     Active Substance: CELECOXIB
     Indication: Spinal stenosis
  3. CELECOXIB [Suspect]
     Active Substance: CELECOXIB
     Indication: Arthritis
  4. ZOLOFT [Concomitant]
     Active Substance: SERTRALINE HYDROCHLORIDE
  5. LISINOPRIL [Concomitant]
     Active Substance: LISINOPRIL
  6. pantoprazole or esomeprazole [Concomitant]
  7. ACETAMINOPHEN\HYDROCODONE [Concomitant]
     Active Substance: ACETAMINOPHEN\HYDROCODONE
  8. LIDOCAINE PATCH [Concomitant]
     Active Substance: LIDOCAINE
  9. TRAZODONE [Concomitant]
     Active Substance: TRAZODONE HYDROCHLORIDE
  10. Cacao supplement [Concomitant]
  11. FISH OIL [Concomitant]
     Active Substance: FISH OIL

REACTIONS (4)
  - Diarrhoea [None]
  - Abdominal pain [None]
  - Surgery [None]
  - Treatment delayed [None]

NARRATIVE: CASE EVENT DATE: 20250902
